FAERS Safety Report 18464283 (Version 1)
Quarter: 2020Q4

REPORT INFORMATION
  Report Type: Spontaneous
  Country: JP (occurrence: JP)
  Receive Date: 20201104
  Receipt Date: 20201104
  Transmission Date: 20210114
  Serious: No
  Sender: FDA-Public Use
  Company Number: JP-JAZZ-2020-JP-012492

PATIENT
  Age: 3 Year
  Sex: Female

DRUGS (2)
  1. DEFITELIO [Suspect]
     Active Substance: DEFIBROTIDE SODIUM
     Indication: PRODUCT USED FOR UNKNOWN INDICATION
     Dosage: 6.25 MILLIGRAM/KILOGRAM, QD
     Route: 042
     Dates: start: 20200916
  2. ACOALAN [Concomitant]

REACTIONS (2)
  - Blood bilirubin increased [Unknown]
  - Antithrombin III decreased [Unknown]

NARRATIVE: CASE EVENT DATE: 20200917
